FAERS Safety Report 24528066 (Version 1)
Quarter: 2024Q4

REPORT INFORMATION
  Report Type: Spontaneous
  Country: JP (occurrence: JP)
  Receive Date: 20241021
  Receipt Date: 20241021
  Transmission Date: 20250115
  Serious: Yes (Other)
  Sender: AMGEN
  Company Number: JP-AMGEN-JPNSP2024206319

PATIENT
  Age: 21 Year
  Sex: Male

DRUGS (7)
  1. BLINATUMOMAB [Suspect]
     Active Substance: BLINATUMOMAB
     Indication: B-cell type acute leukaemia
     Dosage: UNK
     Route: 065
  2. FLUDARABINE [Concomitant]
     Active Substance: FLUDARABINE PHOSPHATE
     Indication: B-cell type acute leukaemia
     Dosage: 30 MILLIGRAM/SQ. METER
     Route: 065
  3. CYTARABINE [Concomitant]
     Active Substance: CYTARABINE
     Indication: B-cell type acute leukaemia
     Dosage: 2 GRAM PER SQUARE METRE
  4. CYTARABINE [Concomitant]
     Active Substance: CYTARABINE
     Dosage: 1.5 GRAM PER SQUARE METRE, ON DAYS -9 TO -6
  5. CYTARABINE [Concomitant]
     Active Substance: CYTARABINE
     Dosage: 1.5 GRAM PER SQUARE METRE, ON DAYS -9 TO -6
  6. MELPHALAN [Concomitant]
     Active Substance: MELPHALAN
     Indication: B-cell type acute leukaemia
     Dosage: 60 MILLIGRAM/SQ. METER, ON DAYS -5 TO -3
  7. MELPHALAN [Concomitant]
     Active Substance: MELPHALAN
     Dosage: 70 MILLIGRAM/SQ. METER, ON DAYS -4 AND -3

REACTIONS (6)
  - Acute graft versus host disease in skin [Unknown]
  - Blood follicle stimulating hormone increased [Unknown]
  - Organising pneumonia [Unknown]
  - Immune thrombocytopenia [Unknown]
  - Neutropenic colitis [Unknown]
  - Cytomegalovirus test positive [Unknown]
